FAERS Safety Report 4268629-1 (Version None)
Quarter: 2004Q1

REPORT INFORMATION
  Report Type: 
  Country: None (occurrence: None)
  Receive Date: 20040108
  Receipt Date: 20031229
  Transmission Date: 20041129
  Serious: Yes (Disabling)
  Sender: FDA-Public Use
  Company Number: 2003-DE-06441BY

PATIENT
  Age: 61 Year
  Sex: Male

DRUGS (1)
  1. KINZAL (TELMISARTAN) (TELMISARTAN) [Suspect]
     Indication: HYPERTENSION
     Dosage: PO
     Route: 048
     Dates: start: 20030514, end: 20030808

REACTIONS (2)
  - BACK PAIN [None]
  - PAIN IN EXTREMITY [None]
